FAERS Safety Report 7480394-3 (Version None)
Quarter: 2011Q2

REPORT INFORMATION
  Report Type: 
  Country: None (occurrence: None)
  Receive Date: 20110516
  Receipt Date: 20110511
  Transmission Date: 20111010
  Serious: Yes (Death)
  Sender: FDA-Public Use
  Company Number: PHHY2011PA39489

PATIENT
  Age: 79 Year
  Sex: Male

DRUGS (1)
  1. ZOLEDRONIC ACID [Suspect]
     Dosage: 5 MG, UNK
     Route: 042
     Dates: start: 20090501

REACTIONS (1)
  - DEATH [None]
